FAERS Safety Report 7117072-6 (Version None)
Quarter: 2010Q4

REPORT INFORMATION
  Report Type: 
  Country: None (occurrence: None)
  Receive Date: 20101122
  Receipt Date: 20101114
  Transmission Date: 20110411
  Serious: No
  Sender: FDA-Public Use
  Company Number: US-PFIZER INC-2010147804

PATIENT
  Sex: Female
  Weight: 72.562 kg

DRUGS (4)
  1. LIPITOR [Suspect]
     Indication: BLOOD CHOLESTEROL INCREASED
     Dosage: 20 MG, DAILY
     Route: 048
     Dates: start: 20090101
  2. RISPERIDONE [Concomitant]
     Indication: NERVOUS SYSTEM DISORDER
     Dosage: UNK
  3. BROMOCRIPTINE [Concomitant]
     Indication: BLOOD PROLACTIN INCREASED
     Dosage: UNK
  4. ALENDRONATE SODIUM [Concomitant]
     Indication: OSTEOPOROSIS
     Dosage: UNK

REACTIONS (3)
  - BLOOD PROLACTIN INCREASED [None]
  - POLLAKIURIA [None]
  - PRURITUS [None]
